FAERS Safety Report 8775119 (Version 2)
Quarter: 2012Q4

REPORT INFORMATION
  Report Type: Report from Study
  Country: US (occurrence: US)
  Receive Date: 20120910
  Receipt Date: 20120914
  Transmission Date: 20130627
  Serious: Yes (Other)
  Sender: FDA-Public Use
  Company Number: US-US-EMD SERONO, INC.-7158905

PATIENT
  Age: 48 None
  Sex: Female

DRUGS (1)
  1. REBIF [Suspect]
     Indication: MULTIPLE SCLEROSIS
     Dates: start: 20100809

REACTIONS (3)
  - Type 2 diabetes mellitus [Recovering/Resolving]
  - Multiple sclerosis relapse [Recovering/Resolving]
  - Injection site bruising [Not Recovered/Not Resolved]
